FAERS Safety Report 6465125-8 (Version None)
Quarter: 2009Q4

REPORT INFORMATION
  Report Type: 
  Country: None (occurrence: None)
  Receive Date: 20091109
  Receipt Date: 20091029
  Transmission Date: 20100525
  Serious: Yes (Other)
  Sender: FDA-Public Use
  Company Number: 2009021269

PATIENT
  Age: 58 Year
  Sex: Female

DRUGS (1)
  1. HUMATE-P [Suspect]
     Dosage: 2000 IU INTRAVENOUS (NOT OTHERWISE SPECIFIED)
     Route: 042
     Dates: start: 20091009, end: 20091009

REACTIONS (1)
  - CYANOSIS [None]
